FAERS Safety Report 9190087 (Version 1)
Quarter: 2013Q1

REPORT INFORMATION
  Report Type: Spontaneous
  Country: US (occurrence: None)
  Receive Date: 20130325
  Receipt Date: 20130325
  Transmission Date: 20140127
  Serious: Yes (Hospitalization)
  Sender: FDA-Public Use
  Company Number: None

PATIENT
  Age: 69 Year
  Sex: Male

DRUGS (1)
  1. NAFCILLIN [Suspect]
     Indication: OSTEOMYELITIS
     Route: 041
     Dates: start: 20130202, end: 20130208

REACTIONS (2)
  - Tubulointerstitial nephritis [None]
  - Blood creatinine increased [None]
